FAERS Safety Report 6479737-9 (Version None)
Quarter: 2009Q4

REPORT INFORMATION
  Report Type: 
  Country: None (occurrence: None)
  Receive Date: 20091208
  Receipt Date: 20091125
  Transmission Date: 20100525
  Serious: Yes (Hospitalization)
  Sender: FDA-Public Use
  Company Number: PHHY2009DE51228

PATIENT
  Age: 86 Year
  Sex: Female

DRUGS (15)
  1. LOCOL [Suspect]
     Indication: BLOOD CHOLESTEROL INCREASED
     Dosage: 20 MG DAILY IN MORNING
     Route: 048
     Dates: start: 20090922, end: 20091110
  2. LOCOL [Suspect]
     Dosage: 40 MG DAILY IN EVENING
     Route: 048
     Dates: start: 20091111
  3. CLEXANE [Concomitant]
     Dosage: 1-0-1
     Route: 058
  4. ARTHROTEC [Concomitant]
     Dosage: 1-0-1
  5. PANTOZOL [Concomitant]
     Dosage: 1-0-0
  6. NITROFURANTOIN [Concomitant]
     Dosage: 1-0-1
  7. FOSAMAX [Concomitant]
     Dosage: ONCE PER WEEK
  8. CALCIUM D3 [Concomitant]
  9. VERTIGOREL [Concomitant]
     Dosage: 1-0-0
  10. MAGNESIUM VERLA [Concomitant]
  11. GABUNAT [Concomitant]
     Dosage: UNK
  12. BALDRIAN [Concomitant]
  13. LIFAX [Concomitant]
  14. WISMET [Concomitant]
  15. DRAVATAN [Concomitant]

REACTIONS (13)
  - BLOOD CHOLESTEROL INCREASED [None]
  - BLOOD GLUCOSE INCREASED [None]
  - BLOOD LACTATE DEHYDROGENASE INCREASED [None]
  - C-REACTIVE PROTEIN INCREASED [None]
  - FALL [None]
  - GAIT DISTURBANCE [None]
  - GAMMA-GLUTAMYLTRANSFERASE INCREASED [None]
  - HIGH DENSITY LIPOPROTEIN INCREASED [None]
  - HIP SURGERY [None]
  - KNEE ARTHROPLASTY [None]
  - LOW DENSITY LIPOPROTEIN INCREASED [None]
  - MOTOR DYSFUNCTION [None]
  - WHITE BLOOD CELL COUNT INCREASED [None]
